FAERS Safety Report 15536362 (Version 2)
Quarter: 2018Q4

REPORT INFORMATION
  Report Type: Other
  Country: US (occurrence: US)
  Receive Date: 20181022
  Receipt Date: 20181101
  Transmission Date: 20190205
  Serious: Yes (Hospitalization, Other)
  Sender: FDA-Public Use
  Company Number: US-ACORDA-ACO_149467_2018

PATIENT
  Sex: Female

DRUGS (2)
  1. AMPYRA [Suspect]
     Active Substance: DALFAMPRIDINE
     Indication: MULTIPLE SCLEROSIS
     Dosage: 10 MG, BID
     Route: 048
     Dates: start: 2014
  2. AMPYRA [Suspect]
     Active Substance: DALFAMPRIDINE
     Indication: GAIT DISTURBANCE

REACTIONS (4)
  - Uterine cancer [Recovering/Resolving]
  - Multiple sclerosis [Not Recovered/Not Resolved]
  - Condition aggravated [Recovered/Resolved]
  - Vaginal polyp [Recovering/Resolving]

NARRATIVE: CASE EVENT DATE: 2018
